FAERS Safety Report 12074069 (Version 3)
Quarter: 2018Q3

REPORT INFORMATION
  Report Type: Spontaneous
  Country: FR (occurrence: FR)
  Receive Date: 20160212
  Receipt Date: 20180718
  Transmission Date: 20181010
  Serious: Yes (Hospitalization, Other)
  Sender: FDA-Public Use
  Company Number: FR-SA-2016SA022449

PATIENT
  Age: 87 Year
  Sex: Male
  Weight: 68.8 kg

DRUGS (4)
  1. TAZOCILLINE [Concomitant]
     Active Substance: PIPERACILLIN SODIUM\TAZOBACTAM SODIUM
     Indication: OTITIS EXTERNA
     Dosage: 4 G,TID
     Dates: start: 20151230, end: 20160102
  2. TIENAM [Suspect]
     Active Substance: CILASTATIN SODIUM\IMIPENEM
     Indication: EAR INFECTION
     Dosage: UNK UNK,UNK
     Route: 065
     Dates: start: 20160102
  3. COLIMYCINE [Suspect]
     Active Substance: COLISTIMETHATE SODIUM
     Indication: EAR INFECTION
     Dosage: UNK UNK,UNK
     Route: 065
     Dates: start: 20160102, end: 20160108
  4. LOVENOX [Suspect]
     Active Substance: ENOXAPARIN SODIUM
     Indication: THROMBOSIS PROPHYLAXIS
     Dosage: UNK UNK,UNK
     Route: 058
     Dates: start: 20160104, end: 20160108

REACTIONS (1)
  - Renal impairment [Not Recovered/Not Resolved]

NARRATIVE: CASE EVENT DATE: 20160108
